FAERS Safety Report 26159215 (Version 1)
Quarter: 2025Q4

REPORT INFORMATION
  Report Type: Spontaneous
  Country: CA (occurrence: CA)
  Receive Date: 20251216
  Receipt Date: 20251216
  Transmission Date: 20260118
  Serious: Yes (Hospitalization)
  Sender: BEIGENE
  Company Number: CA-BEONEMEDICINES-BGN-2025-022281

PATIENT
  Sex: Male

DRUGS (4)
  1. BRUKINSA [Suspect]
     Active Substance: ZANUBRUTINIB
     Indication: Product used for unknown indication
     Dosage: UNK
  2. BRUKINSA [Suspect]
     Active Substance: ZANUBRUTINIB
     Dosage: UNK
  3. BRUKINSA [Suspect]
     Active Substance: ZANUBRUTINIB
     Indication: Product used for unknown indication
  4. BRUKINSA [Suspect]
     Active Substance: ZANUBRUTINIB

REACTIONS (4)
  - Melaena [Unknown]
  - Haematochezia [Unknown]
  - Pulmonary embolism [Unknown]
  - Ageusia [Unknown]

NARRATIVE: CASE EVENT DATE: 20251201
